FAERS Safety Report 12320527 (Version 1)
Quarter: 2016Q2

REPORT INFORMATION
  Report Type: Other
  Country: None (occurrence: US)
  Receive Date: 20160429
  Receipt Date: 20160429
  Transmission Date: 20160815
  Serious: Yes (Other)
  Sender: FDA-Public Use
  Company Number: US-GUTHY-RENKER LLC-1051230

PATIENT
  Age: 53 Year
  Sex: Female

DRUGS (3)
  1. DAILY GERITOL, MULTI VITAMIN, CALCIUM, VIT D3, EPI PEN [Concomitant]
  2. MEANINGFUL BEAUTY CINDY CRAWFORD ANTIOXIDANT SPF 20 UVA/UVB [Suspect]
     Active Substance: AVOBENZONE\OCTINOXATE\OCTISALATE\OXYBENZONE
     Indication: PROPHYLAXIS AGAINST SOLAR RADIATION
     Route: 061
     Dates: start: 20160411, end: 20160412
  3. 15 UNDISCLOSED PRESCRIBED MEDICATIONS [Concomitant]

REACTIONS (3)
  - Rash erythematous [None]
  - Swollen tongue [Recovered/Resolved]
  - Eye irritation [None]

NARRATIVE: CASE EVENT DATE: 20160412
